FAERS Safety Report 11239642 (Version 2)
Quarter: 2015Q3

REPORT INFORMATION
  Report Type: Spontaneous
  Country: US (occurrence: US)
  Receive Date: 20150706
  Receipt Date: 20150717
  Transmission Date: 20151125
  Serious: Yes (Life-Threatening, Hospitalization, Other)
  Sender: FDA-Public Use
  Company Number: US-MERCK-1507USA001265

PATIENT
  Sex: Male

DRUGS (1)
  1. KEYTRUDA [Suspect]
     Active Substance: PEMBROLIZUMAB
     Indication: METASTATIC MALIGNANT MELANOMA
     Dosage: UNK, 30MINS EVERY 3 WEEKS
     Route: 042
     Dates: start: 20150605, end: 2015

REACTIONS (3)
  - Abdominal distension [Unknown]
  - Myasthenia gravis crisis [Unknown]
  - Eyelid ptosis [Unknown]

NARRATIVE: CASE EVENT DATE: 20150616
